FAERS Safety Report 25661717 (Version 1)
Quarter: 2025Q3

REPORT INFORMATION
  Report Type: Report from Study
  Country: CN (occurrence: CN)
  Receive Date: 20250808
  Receipt Date: 20250808
  Transmission Date: 20251020
  Serious: Yes (Other)
  Sender: ELI LILLY AND COMPANY
  Company Number: CN-ELI_LILLY_AND_COMPANY-CN202507028719

PATIENT
  Sex: Female
  Weight: 45 kg

DRUGS (3)
  1. ABEMACICLIB [Suspect]
     Active Substance: ABEMACICLIB
     Indication: Breast cancer
     Dosage: 150 MG, BID
     Route: 048
     Dates: start: 20241104
  2. ABEMACICLIB [Suspect]
     Active Substance: ABEMACICLIB
     Dosage: 100 MG, BID
     Route: 048
  3. EXEMESTANE [Concomitant]
     Active Substance: EXEMESTANE
     Indication: Product used for unknown indication

REACTIONS (10)
  - Fracture [Unknown]
  - Constipation [Unknown]
  - Weight decreased [Unknown]
  - Body height decreased [Unknown]
  - Blood pressure decreased [Unknown]
  - Malaise [Unknown]
  - Blood calcium decreased [Unknown]
  - Anaemia [Unknown]
  - Diarrhoea [Recovering/Resolving]
  - Platelet count decreased [Unknown]
